FAERS Safety Report 6279428-3 (Version None)
Quarter: 2009Q3

REPORT INFORMATION
  Report Type: 
  Country: None (occurrence: None)
  Receive Date: 20090721
  Receipt Date: 20090708
  Transmission Date: 20100115
  Serious: Yes (Life-Threatening)
  Sender: FDA-Public Use
  Company Number: DSJ-2009-08294

PATIENT
  Age: 81 Year
  Sex: Male
  Weight: 51.5 kg

DRUGS (8)
  1. OLMESARTAN MEDOXOMIL [Suspect]
     Indication: ESSENTIAL HYPERTENSION
     Dosage: 20 MG (20 MG, 1 IN 1 D), PER ORAL
     Route: 048
     Dates: start: 20051125
  2. OLMESARTAN MEDOXOMIL [Suspect]
     Indication: ESSENTIAL HYPERTENSION
     Dosage: 20 MG (20 MG, 1 IN 1 D), PER ORAL
     Route: 048
     Dates: start: 20051125
  3. MICARDIS [Concomitant]
  4. SELECTOL (CELIPROLOL HYDROCHLORIDE) [Concomitant]
  5. AMLODIPINE [Concomitant]
  6. FLUITRAN (TRICHLORMETHIAZIDE) (TRICHLORMETHIAZIDE) [Concomitant]
  7. ATELEC (CILNIDIPINEE) (CILNIDIPINE) [Concomitant]
  8. DETANTOL R (BUNAZOSIN HYDROCHLORIDE) (BUNAZOSIN HYDROCHLORIDE) [Concomitant]

REACTIONS (5)
  - BLOOD PRESSURE DECREASED [None]
  - CORONARY ARTERY STENOSIS [None]
  - DYSPNOEA [None]
  - ELECTROCARDIOGRAM ST SEGMENT ELEVATION [None]
  - MYOCARDIAL INFARCTION [None]
